FAERS Safety Report 22248746 (Version 1)
Quarter: 2023Q2

REPORT INFORMATION
  Report Type: Spontaneous
  Country: FR (occurrence: FR)
  Receive Date: 20230425
  Receipt Date: 20230425
  Transmission Date: 20230721
  Serious: Yes (Other)
  Sender: FDA-Public Use
  Company Number: FR-ENDO PHARMACEUTICALS INC-2023-001696

PATIENT
  Sex: Male

DRUGS (4)
  1. EDEX [Suspect]
     Active Substance: ALPROSTADIL
     Indication: Erectile dysfunction
     Dosage: 1 INJECTION, TWICE A WEEK
     Route: 065
     Dates: start: 20230323
  2. EDEX [Suspect]
     Active Substance: ALPROSTADIL
     Indication: Erectile dysfunction
     Dosage: 1 INJECTION, TWICE A WEEK
     Route: 065
     Dates: start: 20230323
  3. EDEX [Suspect]
     Active Substance: ALPROSTADIL
     Indication: Erectile dysfunction
     Dosage: 1 INJECTION, TWICE A WEEK
     Route: 065
     Dates: start: 20230323
  4. EDEX [Suspect]
     Active Substance: ALPROSTADIL
     Indication: Erectile dysfunction
     Dosage: 1 INJECTION, TWICE A WEEK
     Route: 065
     Dates: start: 20230323

REACTIONS (4)
  - Product dose omission issue [Unknown]
  - Wrong technique in device usage process [Unknown]
  - Device leakage [Unknown]
  - Device malfunction [Unknown]

NARRATIVE: CASE EVENT DATE: 20230101
